FAERS Safety Report 6540340-3 (Version None)
Quarter: 2010Q1

REPORT INFORMATION
  Report Type: 
  Country: None (occurrence: None)
  Receive Date: 20100115
  Receipt Date: 20100112
  Transmission Date: 20100710
  Serious: Yes (Death, Hospitalization, Other)
  Sender: FDA-Public Use
  Company Number: PHEH2009US17483

PATIENT
  Sex: Female
  Weight: 66.7 kg

DRUGS (20)
  1. EXJADE [Suspect]
     Indication: IRON OVERLOAD
     Dosage: 1500 MG, QD
     Route: 048
     Dates: start: 20070327, end: 20091119
  2. EXJADE [Suspect]
     Indication: MYELODYSPLASTIC SYNDROME
  3. EXJADE [Suspect]
     Indication: ACUTE MYELOID LEUKAEMIA
  4. LEVOTHYROXINE SODIUM [Concomitant]
     Dosage: 0.1 MG, QD
     Route: 048
  5. LOSARTAN POTASSIUM [Concomitant]
     Dosage: .1 MG, QD
  6. MULTI-VITAMINS [Concomitant]
     Dosage: 1 TAB DAILY
  7. TOLTERODINE TARTRATE [Concomitant]
     Dosage: 2 MG, QD
  8. PANTOPRAZOLE [Concomitant]
     Dosage: 40 MG, QD
  9. HYDRALAZINE HYDROCHLORIDE [Concomitant]
     Dosage: UNK
  10. METOPROLOL [Concomitant]
     Dosage: 5 MG, Q6H
     Route: 042
  11. ONDANSETRON HYDROCHLORIDE [Concomitant]
     Dosage: 5 MG IV Q6H PRN
  12. ZOLPIDEM [Concomitant]
     Dosage: 5 MG PRN HS
     Route: 048
  13. TRAMADOL [Concomitant]
     Dosage: 50 MG Q6H PRN
     Route: 048
  14. TIGECYCLINE [Concomitant]
     Dosage: 50 MG I V Q12H
     Route: 042
  15. MEROPENEM [Concomitant]
     Dosage: 1000 MG IV Q12H
     Route: 042
  16. LEVETIRACETAM [Concomitant]
     Dosage: 500 MG IV Q12H
     Route: 042
  17. VORICONAZOLE [Concomitant]
     Dosage: 180 MG IV Q12H
     Route: 042
  18. ACYCLOVIR [Concomitant]
     Dosage: 300 MG IV Q8H
  19. CELEXA [Concomitant]
  20. PLATELETS [Concomitant]

REACTIONS (30)
  - ABDOMINAL DISTENSION [None]
  - ANION GAP DECREASED [None]
  - BLOOD ALBUMIN DECREASED [None]
  - BLOOD ALKALINE PHOSPHATASE INCREASED [None]
  - BLOOD BILIRUBIN INCREASED [None]
  - BLOOD CALCIUM DECREASED [None]
  - BLOOD CHLORIDE DECREASED [None]
  - BLOOD GLUCOSE INCREASED [None]
  - BLOOD OSMOLARITY DECREASED [None]
  - BLOOD UREA INCREASED [None]
  - BREATH SOUNDS ABNORMAL [None]
  - CEREBRAL ARTERY EMBOLISM [None]
  - CEREBROVASCULAR ACCIDENT [None]
  - ECCHYMOSIS [None]
  - FLUID OVERLOAD [None]
  - HAEMATOCRIT DECREASED [None]
  - HAEMOGLOBIN DECREASED [None]
  - HAEMORRHAGIC STROKE [None]
  - HYPOKALAEMIA [None]
  - HYPONATRAEMIA [None]
  - INAPPROPRIATE ANTIDIURETIC HORMONE SECRETION [None]
  - MENTAL STATUS CHANGES [None]
  - NEUTROPENIA [None]
  - OEDEMA [None]
  - PROTEIN TOTAL DECREASED [None]
  - PYREXIA [None]
  - THROMBOTIC STROKE [None]
  - TRANSAMINASES INCREASED [None]
  - URINE OSMOLARITY INCREASED [None]
  - WHITE BLOOD CELL COUNT DECREASED [None]
